FAERS Safety Report 23286738 (Version 5)
Quarter: 2025Q4

REPORT INFORMATION
  Report Type: Report from Study
  Country: EU (occurrence: EU)
  Receive Date: 20231212
  Receipt Date: 20251027
  Transmission Date: 20260118
  Serious: Yes (Hospitalization, Other)
  Sender: ROCHE
  Company Number: EU-ROCHE-2724133

PATIENT
  Age: 23 Year
  Sex: Female
  Weight: 54.0 kg

DRUGS (42)
  1. OCRELIZUMAB [Suspect]
     Active Substance: OCRELIZUMAB
     Indication: Relapsing-remitting multiple sclerosis
     Dosage: 300 MG/ 250 ML
     Route: 042
     Dates: start: 20201001, end: 20201015
  2. OCRELIZUMAB [Suspect]
     Active Substance: OCRELIZUMAB
     Route: 042
     Dates: start: 20210609, end: 20210609
  3. OCRELIZUMAB [Suspect]
     Active Substance: OCRELIZUMAB
     Route: 042
     Dates: start: 20230713, end: 20230713
  4. OCRELIZUMAB [Suspect]
     Active Substance: OCRELIZUMAB
     Route: 042
     Dates: start: 20220707, end: 20220707
  5. OCRELIZUMAB [Suspect]
     Active Substance: OCRELIZUMAB
     Route: 042
     Dates: start: 20230112, end: 20230112
  6. OCRELIZUMAB [Suspect]
     Active Substance: OCRELIZUMAB
     Route: 042
     Dates: start: 20211230, end: 20211230
  7. OCRELIZUMAB [Suspect]
     Active Substance: OCRELIZUMAB
     Route: 042
     Dates: start: 20240411, end: 20240411
  8. OCRELIZUMAB [Suspect]
     Active Substance: OCRELIZUMAB
     Route: 042
  9. OCRELIZUMAB [Suspect]
     Active Substance: OCRELIZUMAB
     Route: 042
  10. OCRELIZUMAB [Suspect]
     Active Substance: OCRELIZUMAB
     Route: 042
  11. OCRELIZUMAB [Suspect]
     Active Substance: OCRELIZUMAB
     Route: 042
     Dates: start: 20241014, end: 20241014
  12. OCRELIZUMAB [Suspect]
     Active Substance: OCRELIZUMAB
     Route: 042
     Dates: start: 20241014, end: 20241014
  13. SOLU-MEDROL [Concomitant]
     Active Substance: METHYLPREDNISOLONE SODIUM SUCCINATE
     Indication: Premedication
     Dosage: FREQUENCY TEXT:ONCE BEFORE INFUSION
     Route: 042
     Dates: start: 20201001, end: 20201001
  14. SOLU-MEDROL [Concomitant]
     Active Substance: METHYLPREDNISOLONE SODIUM SUCCINATE
     Dosage: FREQUENCY TEXT:ONCE BEFORE INFUSION
     Route: 042
     Dates: start: 20201015, end: 20201015
  15. SOLU-MEDROL [Concomitant]
     Active Substance: METHYLPREDNISOLONE SODIUM SUCCINATE
     Dosage: FREQUENCY TEXT:ONCE BEFORE INFUSION
     Route: 042
     Dates: start: 20220707, end: 20220707
  16. SOLU-MEDROL [Concomitant]
     Active Substance: METHYLPREDNISOLONE SODIUM SUCCINATE
     Dosage: FREQUENCY TEXT:ONCE BEFORE INFUSION
     Route: 042
     Dates: start: 20230112, end: 20230112
  17. SOLU-MEDROL [Concomitant]
     Active Substance: METHYLPREDNISOLONE SODIUM SUCCINATE
     Dosage: FREQUENCY TEXT:ONCE BEFORE INFUSION
     Route: 042
     Dates: start: 20230713, end: 20230713
  18. SOLU-MEDROL [Concomitant]
     Active Substance: METHYLPREDNISOLONE SODIUM SUCCINATE
     Dosage: FREQUENCY TEXT:ONCE BEFORE INFUSION
     Route: 042
     Dates: start: 20241014, end: 20241014
  19. SOLU-MEDROL [Concomitant]
     Active Substance: METHYLPREDNISOLONE SODIUM SUCCINATE
     Dosage: FREQUENCY TEXT:ONCE BEFORE INFUSION
     Route: 042
     Dates: start: 20250528, end: 20250528
  20. LORATADINE [Concomitant]
     Active Substance: LORATADINE
     Indication: Premedication
     Dosage: FREQUENCY TEXT:ONCE BEFORE INFUSION
     Route: 048
     Dates: start: 20201001, end: 20201001
  21. LORATADINE [Concomitant]
     Active Substance: LORATADINE
     Dosage: FREQUENCY TEXT:ONCE BEFORE INFUSION
     Route: 048
     Dates: start: 20201015, end: 20201015
  22. LORATADINE [Concomitant]
     Active Substance: LORATADINE
     Dosage: FREQUENCY TEXT:ONCE BEFORE INFUSION
     Route: 048
     Dates: start: 20211230, end: 20211230
  23. LORATADINE [Concomitant]
     Active Substance: LORATADINE
     Dosage: FREQUENCY TEXT:ONCE BEFORE INFUSION
     Route: 048
     Dates: start: 20220707, end: 20220707
  24. PREGABALIN [Concomitant]
     Active Substance: PREGABALIN
     Route: 048
     Dates: start: 20210121, end: 20211007
  25. PREGABALIN [Concomitant]
     Active Substance: PREGABALIN
     Route: 048
     Dates: start: 20211007
  26. ACETAMINOPHEN [Concomitant]
     Active Substance: ACETAMINOPHEN
     Indication: Premedication
     Dosage: FREQUENCY TEXT:ONCE BEFORE INFUSION
     Route: 048
     Dates: start: 20201001, end: 20201001
  27. ACETAMINOPHEN [Concomitant]
     Active Substance: ACETAMINOPHEN
     Dosage: FREQUENCY TEXT:ONCE BEFORE INFUSION
     Route: 048
     Dates: start: 20201015, end: 20201015
  28. ACETAMINOPHEN [Concomitant]
     Active Substance: ACETAMINOPHEN
     Dosage: FREQUENCY TEXT:ONCE BEFORE INFUSION
     Route: 048
     Dates: start: 20211230, end: 20211230
  29. ACETAMINOPHEN [Concomitant]
     Active Substance: ACETAMINOPHEN
     Route: 048
     Dates: start: 20220707, end: 20220707
  30. ACETAMINOPHEN [Concomitant]
     Active Substance: ACETAMINOPHEN
     Dosage: ONCE BEFORE INFUSION
     Route: 048
     Dates: start: 20230112, end: 20230112
  31. ACETAMINOPHEN [Concomitant]
     Active Substance: ACETAMINOPHEN
     Dosage: ONCE BEFORE INFUSION
     Route: 048
     Dates: start: 20230713, end: 20230713
  32. ACETAMINOPHEN [Concomitant]
     Active Substance: ACETAMINOPHEN
     Dosage: ONCE BEFORE INFUSION
     Route: 048
     Dates: start: 20240411, end: 20240411
  33. ACETAMINOPHEN [Concomitant]
     Active Substance: ACETAMINOPHEN
     Dosage: ONCE BEFORE INFUSION
     Route: 048
     Dates: start: 20241014, end: 20241014
  34. ACETAMINOPHEN [Concomitant]
     Active Substance: ACETAMINOPHEN
     Dosage: ONCE BEFORE INFUSION
     Route: 048
     Dates: start: 20250528, end: 20250528
  35. METHYLPREDNISOLONE [Concomitant]
     Active Substance: METHYLPREDNISOLONE
     Dosage: FREQUENCY TEXT:ONCE BEFORE INFUSION
     Route: 042
     Dates: start: 20211230, end: 20211230
  36. ETHINYL ESTRADIOL [Concomitant]
     Active Substance: ETHINYL ESTRADIOL
     Indication: Contraception
     Route: 048
     Dates: start: 20190502
  37. COMIRNATY [Concomitant]
     Indication: Prophylaxis
     Route: 042
     Dates: start: 20210326, end: 20210416
  38. CHLORPHENIRAMINE MALEATE [Concomitant]
     Active Substance: CHLORPHENIRAMINE MALEATE
     Dosage: ONCE BEFORE INFUSION
     Route: 014
     Dates: start: 20230112, end: 20230112
  39. CHLORPHENIRAMINE MALEATE [Concomitant]
     Active Substance: CHLORPHENIRAMINE MALEATE
     Dosage: ONCE BEFORE INFUSION
     Route: 014
     Dates: start: 20230713, end: 20230713
  40. CHLORPHENIRAMINE MALEATE [Concomitant]
     Active Substance: CHLORPHENIRAMINE MALEATE
     Dosage: ONCE BEFORE INFUSION
     Route: 014
     Dates: start: 20240411, end: 20240411
  41. CHLORPHENIRAMINE MALEATE [Concomitant]
     Active Substance: CHLORPHENIRAMINE MALEATE
     Dosage: ONCE BEFORE INFUSION
     Route: 014
     Dates: start: 20241014, end: 20241014
  42. CHLORPHENIRAMINE MALEATE [Concomitant]
     Active Substance: CHLORPHENIRAMINE MALEATE
     Dosage: ONCE BEFORE INFUSION
     Route: 042
     Dates: start: 20250528, end: 20250528

REACTIONS (3)
  - Pyrexia [Recovered/Resolved]
  - Neutropenia [Recovered/Resolved]
  - Leukopenia [Recovering/Resolving]

NARRATIVE: CASE EVENT DATE: 20201028
